FAERS Safety Report 13237997 (Version 1)
Quarter: 2017Q1

REPORT INFORMATION
  Report Type: Spontaneous
  Country: US (occurrence: US)
  Receive Date: 20170215
  Receipt Date: 20170215
  Transmission Date: 20170428
  Serious: Yes (Hospitalization)
  Sender: FDA-Public Use
  Company Number: None

PATIENT
  Age: 83 Year
  Sex: Female
  Weight: 59.85 kg

DRUGS (13)
  1. ELIQUIS [Suspect]
     Active Substance: APIXABAN
     Indication: ATRIAL FIBRILLATION
     Dosage: ?          QUANTITY:1 TABLET(S);?
     Route: 048
     Dates: start: 20160525, end: 20160601
  2. GERITOL COOMPLETE [Concomitant]
  3. SYNTHROID [Suspect]
     Active Substance: LEVOTHYROXINE SODIUM
  4. PRILOSEC [Concomitant]
     Active Substance: OMEPRAZOLE MAGNESIUM
  5. NITROSTAT [Concomitant]
     Active Substance: NITROGLYCERIN
  6. VOLTAREN [Concomitant]
     Active Substance: DICLOFENAC SODIUM
  7. PRESERVISION (AREDS 2) [Concomitant]
  8. PREDNISONE. [Concomitant]
     Active Substance: PREDNISONE
  9. IMURAN [Concomitant]
     Active Substance: AZATHIOPRINE
  10. LISINOPRIL. [Concomitant]
     Active Substance: LISINOPRIL
  11. IMDUR [Concomitant]
     Active Substance: ISOSORBIDE MONONITRATE
  12. WARFARIN [Concomitant]
     Active Substance: WARFARIN
  13. CALCIUM [Concomitant]
     Active Substance: CALCIUM

REACTIONS (5)
  - Syncope [None]
  - Haematoma [None]
  - Pulse absent [None]
  - Pain in extremity [None]
  - Respiratory arrest [None]

NARRATIVE: CASE EVENT DATE: 20160528
